FAERS Safety Report 18738032 (Version 1)
Quarter: 2021Q1

REPORT INFORMATION
  Report Type: Report from Study
  Country: ID (occurrence: ID)
  Receive Date: 20210114
  Receipt Date: 20210114
  Transmission Date: 20210419
  Serious: Yes (Hospitalization, Other)
  Sender: FDA-Public Use
  Company Number: ID-ASTRAZENECA-2019SE63016

PATIENT
  Age: 70 Year
  Sex: Female

DRUGS (3)
  1. TAGRISSO [Suspect]
     Active Substance: OSIMERTINIB
     Indication: NON-SMALL CELL LUNG CANCER
     Route: 048
     Dates: start: 201903
  2. TAGRISSO [Suspect]
     Active Substance: OSIMERTINIB
     Indication: NON-SMALL CELL LUNG CANCER
     Dosage: 40.0MG UNKNOWN
     Route: 048
  3. TAGRISSO [Suspect]
     Active Substance: OSIMERTINIB
     Indication: NON-SMALL CELL LUNG CANCER
     Dosage: 80.0MG UNKNOWN
     Route: 048
     Dates: start: 20190610

REACTIONS (10)
  - Hypophagia [Unknown]
  - Cheilitis [Recovering/Resolving]
  - Nausea [Unknown]
  - Vomiting [Unknown]
  - Electrolyte imbalance [Unknown]
  - Abdominal pain upper [Recovering/Resolving]
  - Mouth ulceration [Recovering/Resolving]
  - Dehydration [Unknown]
  - Nail disorder [Recovering/Resolving]
  - General physical health deterioration [Unknown]
